FAERS Safety Report 17506017 (Version 2)
Quarter: 2021Q1

REPORT INFORMATION
  Report Type: Spontaneous
  Country: US (occurrence: US)
  Receive Date: 20200306
  Receipt Date: 20210222
  Transmission Date: 20210419
  Serious: Yes (Other)
  Sender: FDA-Public Use
  Company Number: US-TEVA-2020-US-1195235

PATIENT
  Age: 72 Year
  Sex: Female
  Weight: 58 kg

DRUGS (8)
  1. AUSTEDO [Suspect]
     Active Substance: DEUTETRABENAZINE
     Route: 048
     Dates: start: 20200220
  2. SIMVASTATIN 40 MG [Concomitant]
     Active Substance: SIMVASTATIN
     Route: 048
  3. AUSTEDO [Suspect]
     Active Substance: DEUTETRABENAZINE
     Indication: TARDIVE DYSKINESIA
     Route: 048
     Dates: start: 20200214, end: 20200220
  4. LAMOTRIGINE 100 MG [Concomitant]
     Active Substance: LAMOTRIGINE
     Route: 048
  5. HYDROCHLOROTHIAZIDE 12.5 MG [Concomitant]
     Active Substance: HYDROCHLOROTHIAZIDE
     Route: 048
  6. LOSARTAN POTASSIUM 50 MG [Concomitant]
     Active Substance: LOSARTAN POTASSIUM
     Route: 048
  7. DULOXETINE HL CAPSULE DELAYED RELEASE PARTICLES 30MG [Concomitant]
     Route: 048
  8. KLOR?CON M20 20MEQ [Concomitant]
     Route: 048

REACTIONS (1)
  - Muscular weakness [Not Recovered/Not Resolved]

NARRATIVE: CASE EVENT DATE: 20200226
